FAERS Safety Report 4801704-9 (Version None)
Quarter: 2005Q4

REPORT INFORMATION
  Report Type: 
  Country: None (occurrence: None)
  Receive Date: 20051018
  Receipt Date: 20051004
  Transmission Date: 20060501
  Serious: Yes (Hospitalization)
  Sender: FDA-Public Use
  Company Number: JP-JPN-A20052464

PATIENT
  Age: 63 Year
  Sex: Female
  Weight: 29 kg

DRUGS (5)
  1. ZOVIRAX [Suspect]
     Indication: HERPES ZOSTER
     Dosage: 400MG FOUR TIMES PER DAY
     Route: 048
     Dates: start: 20050830, end: 20050903
  2. ALFAROL [Concomitant]
     Dosage: .5MCG PER DAY
     Route: 048
  3. MUCOSTA [Concomitant]
     Route: 048
  4. NITRAZEPAM [Concomitant]
     Dosage: 5MG PER DAY
     Route: 048
  5. LENDORMIN [Concomitant]
     Dosage: .25MG PER DAY
     Route: 048

REACTIONS (3)
  - DIZZINESS [None]
  - DYSLALIA [None]
  - HEMIPLEGIA [None]
